FAERS Safety Report 11107111 (Version 1)
Quarter: 2015Q2

REPORT INFORMATION
  Report Type: Spontaneous
  Country: US (occurrence: US)
  Receive Date: 20150512
  Receipt Date: 20150512
  Transmission Date: 20150821
  Serious: No
  Sender: FDA-Public Use
  Company Number: US-LEO PHARMA-233926

PATIENT
  Age: 54 Year
  Sex: Male

DRUGS (1)
  1. PICATO [Suspect]
     Active Substance: INGENOL MEBUTATE
     Indication: ACTINIC KERATOSIS
     Route: 061

REACTIONS (6)
  - Application site scab [Recovered/Resolved]
  - Application site pain [Recovered/Resolved]
  - Multiple use of single-use product [Unknown]
  - Application site swelling [Recovered/Resolved]
  - Application site ulcer [Recovered/Resolved]
  - Application site erythema [Recovering/Resolving]
